FAERS Safety Report 7634674-9 (Version None)
Quarter: 2011Q3

REPORT INFORMATION
  Report Type: 
  Country: None (occurrence: None)
  Receive Date: 20110725
  Receipt Date: 20110622
  Transmission Date: 20111222
  Serious: No
  Sender: FDA-Public Use
  Company Number: US-BAYER-2011-055456

PATIENT
  Age: 27 Year
  Sex: Female
  Weight: 47.619 kg

DRUGS (2)
  1. ALEVE (CAPLET) [Suspect]
     Dosage: BOTTLE COUNT 200S
     Route: 048
     Dates: start: 20110622
  2. TRAMADOL HCL [Concomitant]

REACTIONS (3)
  - AFFECT LABILITY [None]
  - ASTHENIA [None]
  - FATIGUE [None]
